FAERS Safety Report 4608814-X (Version None)
Quarter: 2005Q1

REPORT INFORMATION
  Report Type: 
  Country: None (occurrence: None)
  Receive Date: 20050315
  Receipt Date: 20050304
  Transmission Date: 20050727
  Serious: Yes (Hospitalization, Other)
  Sender: FDA-Public Use
  Company Number: PHNU2005DE01197

PATIENT
  Sex: Male

DRUGS (6)
  1. CLOZARIL [Suspect]
     Indication: SCHIZOPHRENIA
     Route: 048
     Dates: end: 20040707
  2. CLOZARIL [Suspect]
     Dosage: 300 TO 450 MG
     Route: 048
     Dates: start: 20040708, end: 20040808
  3. CLOZARIL [Suspect]
     Route: 048
     Dates: start: 20040809, end: 20040908
  4. CLOZARIL [Suspect]
     Route: 048
     Dates: start: 20040909, end: 20040917
  5. CLOZARIL [Suspect]
     Route: 048
     Dates: start: 20040918
  6. TREVILOR [Concomitant]
     Dates: start: 20040708

REACTIONS (8)
  - ALANINE AMINOTRANSFERASE INCREASED [None]
  - ELECTROENCEPHALOGRAM ABNORMAL [None]
  - GAMMA-GLUTAMYLTRANSFERASE INCREASED [None]
  - GLUTAMATE DEHYDROGENASE INCREASED [None]
  - HEPATIC ENZYME INCREASED [None]
  - HYPOTONIA [None]
  - SPEECH DISORDER [None]
  - TREMOR [None]
